FAERS Safety Report 8368073-1 (Version None)
Quarter: 2012Q2

REPORT INFORMATION
  Report Type: 
  Country: None (occurrence: None)
  Receive Date: 20120517
  Receipt Date: 20120515
  Transmission Date: 20120825
  Serious: Yes (Other)
  Sender: FDA-Public Use
  Company Number: JP-PFIZER INC-2012087800

PATIENT
  Age: 82 Year
  Sex: Male

DRUGS (3)
  1. PRORENAL [Concomitant]
     Indication: LUMBAR SPINAL STENOSIS
     Dosage: 10 UG, 3X/DAY
     Route: 048
     Dates: start: 20060920
  2. LYRICA [Suspect]
     Indication: BACK PAIN
     Dosage: 75 MG, 1X/DAY
     Route: 048
     Dates: start: 20120229
  3. SUNRYTHM [Concomitant]
     Indication: ARRHYTHMIA
     Dosage: 50 MG, 2X/DAY
     Route: 048
     Dates: start: 20060920

REACTIONS (2)
  - ROAD TRAFFIC ACCIDENT [None]
  - FEELING ABNORMAL [None]
